FAERS Safety Report 13495821 (Version 1)
Quarter: 2017Q2

REPORT INFORMATION
  Report Type: Spontaneous
  Country: GB (occurrence: GB)
  Receive Date: 20170428
  Receipt Date: 20170428
  Transmission Date: 20170830
  Serious: Yes (Other)
  Sender: FDA-Public Use
  Company Number: GB-PFIZER INC-2017064955

PATIENT
  Age: 14 Year
  Sex: Female
  Weight: 50 kg

DRUGS (5)
  1. CLONAZEPAM. [Concomitant]
     Active Substance: CLONAZEPAM
     Dosage: UNK UNK, 1X/DAY
  2. NEUROFEN [Concomitant]
     Active Substance: IBUPROFEN
  3. CARBAMAZEPINE. [Concomitant]
     Active Substance: CARBAMAZEPINE
     Dosage: UNK UNK, 1X/DAY
  4. SAYANA PRESS [Suspect]
     Active Substance: MEDROXYPROGESTERONE\MEDROXYPROGESTERONE ACETATE
     Indication: MENORRHAGIA
     Dosage: UNK, 12 WEEKLY
     Route: 058
     Dates: start: 20161123
  5. CALPOL [Concomitant]
     Active Substance: ACETAMINOPHEN
     Dosage: UNK UNK, AS NEEDED

REACTIONS (3)
  - Dysmenorrhoea [Recovered/Resolved]
  - Seizure [Recovered/Resolved]
  - Drug ineffective for unapproved indication [Recovered/Resolved]

NARRATIVE: CASE EVENT DATE: 20170115
